FAERS Safety Report 13597147 (Version 3)
Quarter: 2017Q3

REPORT INFORMATION
  Report Type: Report from Study
  Country: US (occurrence: US)
  Receive Date: 20170531
  Receipt Date: 20170707
  Transmission Date: 20171127
  Serious: Yes (Death, Life-Threatening)
  Sender: FDA-Public Use
  Company Number: US-009507513-1705USA014471

PATIENT
  Age: 72 Year
  Sex: Male

DRUGS (2)
  1. KEYTRUDA [Suspect]
     Active Substance: PEMBROLIZUMAB
     Indication: PLASMA CELL MYELOMA
     Dosage: 200 MG, EVERY 4 WEEKS
     Route: 042
     Dates: start: 20170427, end: 20170427
  2. KEYTRUDA [Suspect]
     Active Substance: PEMBROLIZUMAB
     Indication: PLASMACYTOMA
     Dosage: 200 MG, EVERY 4 WEEKS
     Route: 042
     Dates: start: 20170406, end: 20170406

REACTIONS (2)
  - General symptom [Fatal]
  - Product use issue [Unknown]

NARRATIVE: CASE EVENT DATE: 2017
